FAERS Safety Report 7610612-X (Version None)
Quarter: 2011Q3

REPORT INFORMATION
  Report Type: 
  Country: None (occurrence: None)
  Receive Date: 20110707
  Receipt Date: 20110621
  Transmission Date: 20111222
  Serious: Yes (Disabling)
  Sender: FDA-Public Use
  Company Number: DSM-2011-00630

PATIENT
  Sex: Female

DRUGS (1)
  1. AXELER (OLMESARTAN MEDOXOMIL, AMLODIPINE BESILATE) (TABLET) (OLMESARTA [Suspect]
     Indication: HYPERTENSION
     Dosage: ORAL
     Route: 048
     Dates: start: 20090601, end: 20100901

REACTIONS (46)
  - COUGH [None]
  - PARAESTHESIA [None]
  - DYSPNOEA [None]
  - CHILLS [None]
  - HYPERHIDROSIS [None]
  - IRRITABILITY [None]
  - DYSPEPSIA [None]
  - CONSTIPATION [None]
  - PALPITATIONS [None]
  - MUSCLE SPASMS [None]
  - PAIN IN EXTREMITY [None]
  - MICTURITION URGENCY [None]
  - SLEEP DISORDER [None]
  - DEPRESSION [None]
  - PURPURA [None]
  - FATIGUE [None]
  - RHINITIS [None]
  - ARTHRALGIA [None]
  - MALAISE [None]
  - ASTHENIA [None]
  - GENERAL PHYSICAL HEALTH DETERIORATION [None]
  - DEAFNESS TRANSITORY [None]
  - NAUSEA [None]
  - PRURITUS [None]
  - YELLOW SKIN [None]
  - DIZZINESS POSTURAL [None]
  - DRY MOUTH [None]
  - BACK PAIN [None]
  - FLUSHING [None]
  - VISUAL IMPAIRMENT [None]
  - DECREASED APPETITE [None]
  - HEADACHE [None]
  - ABDOMINAL PAIN [None]
  - ANGINA PECTORIS [None]
  - DERMATITIS ALLERGIC [None]
  - ANXIETY [None]
  - DYSGEUSIA [None]
  - ALOPECIA [None]
  - PARALYSIS [None]
  - WEIGHT DECREASED [None]
  - DIZZINESS [None]
  - BONE PAIN [None]
  - URINARY TRACT INFECTION [None]
  - CONTUSION [None]
  - TINNITUS [None]
  - HYPOTENSION [None]
